FAERS Safety Report 19931487 (Version 2)
Quarter: 2021Q4

REPORT INFORMATION
  Report Type: Spontaneous
  Country: US (occurrence: US)
  Receive Date: 20211008
  Receipt Date: 20211227
  Transmission Date: 20220303
  Serious: No
  Sender: FDA-Public Use
  Company Number: US-AVEO ONCOLOGY-2021-AVEO-US003539

PATIENT

DRUGS (9)
  1. FOTIVDA [Suspect]
     Active Substance: TIVOZANIB HYDROCHLORIDE
     Indication: Renal cell carcinoma
     Dosage: 1.34 MG, DAILY FOR 21 DAYS THEN 7 DAYS OFF
     Route: 048
     Dates: start: 20210531
  2. B COMPLEX WITH FOLIC ACID [Concomitant]
     Dosage: UNK
  3. INSULIN GLARGINE [Concomitant]
     Active Substance: INSULIN GLARGINE
     Dosage: UNK
  4. IRON [Concomitant]
     Active Substance: IRON
  5. VITAMIN C [Concomitant]
     Active Substance: ASCORBIC ACID
  6. VITAMIN B3 [Concomitant]
     Active Substance: NIACIN
  7. PANTOPRAZOLE [Concomitant]
     Active Substance: PANTOPRAZOLE
  8. HYDROCORTISONE [Concomitant]
     Active Substance: HYDROCORTISONE
  9. INSULIN LISPRO [Concomitant]
     Active Substance: INSULIN LISPRO

REACTIONS (2)
  - Diarrhoea [Recovered/Resolved]
  - Fatigue [Unknown]
